FAERS Safety Report 9262055 (Version 1)
Quarter: 2013Q2

REPORT INFORMATION
  Report Type: Report from Study
  Country: BE (occurrence: BE)
  Receive Date: 20130429
  Receipt Date: 20130429
  Transmission Date: 20140414
  Serious: Yes (Hospitalization)
  Sender: FDA-Public Use
  Company Number: BE-AMGEN-BELCT2013029621

PATIENT
  Age: 49 Year
  Sex: Female

DRUGS (5)
  1. ETANERCEPT [Suspect]
     Indication: RHEUMATOID ARTHRITIS
     Dosage: 25 MG, 2 TIMES/WK
     Route: 058
     Dates: start: 20060712, end: 20070530
  2. FOLIC ACID [Concomitant]
     Dosage: UNK
     Route: 065
     Dates: start: 20060601
  3. LEDERTREXATE                       /00113801/ [Concomitant]
     Dosage: UNK
     Route: 065
     Dates: start: 20060712
  4. APRANAX                            /00256201/ [Concomitant]
     Dosage: UNK
     Route: 065
     Dates: start: 20070110
  5. SEROXAT [Concomitant]
     Dosage: UNK
     Route: 065
     Dates: start: 20050623

REACTIONS (3)
  - Ankle fracture [Recovered/Resolved]
  - Osteitis [Recovered/Resolved]
  - Staphylococcal osteomyelitis [Recovered/Resolved]
